FAERS Safety Report 14601683 (Version 3)
Quarter: 2020Q3

REPORT INFORMATION
  Report Type: Report from Study
  Country: IT (occurrence: IT)
  Receive Date: 20180306
  Receipt Date: 20200914
  Transmission Date: 20201102
  Serious: Yes (Hospitalization)
  Sender: FDA-Public Use
  Company Number: IT-ROCHE-2057035

PATIENT

DRUGS (2)
  1. ERLOTINIB [Suspect]
     Active Substance: ERLOTINIB
     Indication: NON-SMALL CELL LUNG CANCER
     Dosage: ON 20/NOV/2017 MOST RECENT ERLOTINIB WAS 100 MG
     Route: 048
     Dates: start: 20170530
  2. BEVACIZUMAB. [Suspect]
     Active Substance: BEVACIZUMAB
     Indication: NON-SMALL CELL LUNG CANCER
     Dosage: AS PER PROTOCOL, MOST RECENT DOSE PRIOR TO EVENT: 27/OCT/2017, MOST RECENT DOSE OF BEVACIZUMAB WAS 1
     Route: 042
     Dates: start: 20170530, end: 20171119

REACTIONS (1)
  - Osteonecrosis [Recovered/Resolved]

NARRATIVE: CASE EVENT DATE: 20171123
